FAERS Safety Report 8989378 (Version 1)
Quarter: 2012Q4

REPORT INFORMATION
  Report Type: 
  Country: US (occurrence: US)
  Receive Date: 20121228
  Receipt Date: 20121228
  Transmission Date: 20130627
  Serious: Yes (Hospitalization)
  Sender: FDA-Public Use
  Company Number: US-BAYER-2012-134191

PATIENT
  Age: 57 Year
  Sex: Male

DRUGS (8)
  1. CIPROFLOXACIN [Suspect]
     Indication: PROPHYLAXIS
     Dosage: 500 mg, BID
     Route: 048
  2. CIPROFLOXACIN [Suspect]
     Indication: PROSTATITIS
  3. LEVOFLOXACIN [Suspect]
     Indication: EPIDIDYMO-ORCHITIS
  4. LEVOFLOXACIN [Suspect]
     Indication: EPIDIDYMO-ORCHITIS
     Route: 042
  5. LEVOFLOXACIN [Suspect]
     Indication: EPIDIDYMO-ORCHITIS
     Dosage: Daily dose 500 mg
     Route: 048
  6. LEVOFLOXACIN [Suspect]
     Indication: EPIDIDYMO-ORCHITIS
     Dosage: Daily dose 750 mg
     Route: 042
  7. GENTAMICIN [Suspect]
     Indication: EPIDIDYMO-ORCHITIS
     Route: 042
  8. AMOXICILLIN SODIUM/CLAVULANATE POTASSIUM [Suspect]
     Route: 048

REACTIONS (10)
  - Drug resistance [None]
  - Orchitis [Recovered/Resolved]
  - Bacteraemia [Recovered/Resolved]
  - Bacteriuria [Recovered/Resolved]
  - Meningitis bacterial [Recovered/Resolved]
  - Drug ineffective [None]
  - Wrong drug administered [None]
  - Escherichia bacteraemia [None]
  - Pathogen resistance [None]
  - Drug effect delayed [None]
